FAERS Safety Report 23171002 (Version 1)
Quarter: 2023Q4

REPORT INFORMATION
  Report Type: Spontaneous
  Country: US (occurrence: None)
  Receive Date: 20231109
  Receipt Date: 20231109
  Transmission Date: 20240110
  Serious: Yes (unspecified)
  Sender: FDA-Public Use
  Company Number: None

PATIENT
  Age: 14 Year
  Sex: Male
  Weight: 52.9 kg

DRUGS (1)
  1. CYTARABINE [Suspect]
     Active Substance: CYTARABINE
     Dosage: OTHER FREQUENCY : ONCE;?
     Route: 037
     Dates: start: 20231023, end: 20231023

REACTIONS (5)
  - Blood pressure decreased [None]
  - Body temperature increased [None]
  - Vomiting [None]
  - Seizure [None]
  - Cardiopulmonary failure [None]

NARRATIVE: CASE EVENT DATE: 20231023
